FAERS Safety Report 8807391 (Version 1)
Quarter: 2012Q4

REPORT INFORMATION
  Report Type: 
  Country: US (occurrence: US)
  Receive Date: 20120925
  Receipt Date: 20120925
  Transmission Date: 20130627
  Serious: No
  Sender: FDA-Public Use
  Company Number: US-MYLANLABS-2011S1019533

PATIENT
  Age: 86 Year
  Sex: Female

DRUGS (15)
  1. NITROGLYCERIN TRANSDERMAL SYSTEM [Suspect]
     Indication: ANGINA PECTORIS
     Dosage: Changed qhs and removed each morning
     Route: 062
     Dates: start: 2006
  2. AVANDIA [Concomitant]
  3. ALTACE [Concomitant]
  4. AMARYL [Concomitant]
  5. FLEXERIL [Concomitant]
  6. LANOXIN [Concomitant]
  7. LIPITOR [Concomitant]
  8. LOPRESSOR [Concomitant]
  9. PEPCID [Concomitant]
  10. SYNTHROID [Concomitant]
  11. ASPIRIN [Concomitant]
  12. CALCIUM [Concomitant]
  13. FISH OIL [Concomitant]
  14. MULTIVITAMIN [Concomitant]
  15. VITAMIN E [Concomitant]

REACTIONS (3)
  - Application site exfoliation [Not Recovered/Not Resolved]
  - Application site pruritus [Not Recovered/Not Resolved]
  - Application site erythema [Not Recovered/Not Resolved]
